FAERS Safety Report 20692535 (Version 1)
Quarter: 2022Q2

REPORT INFORMATION
  Report Type: Spontaneous
  Country: US (occurrence: US)
  Receive Date: 20220409
  Receipt Date: 20220409
  Transmission Date: 20220720
  Serious: No
  Sender: FDA-Public Use
  Company Number: US-BRISTOL-MYERS SQUIBB COMPANY-2022-014374

PATIENT
  Age: 75 Year
  Sex: Female
  Weight: 75.74 kg

DRUGS (2)
  1. OPDIVO [Suspect]
     Active Substance: NIVOLUMAB
     Indication: Bronchial carcinoma
     Dosage: DOSE : 1 (2 VIALS);     FREQ : EVERY 21 DAYS? 40MG (120MG)
     Route: 042
     Dates: start: 20220314, end: 20220314
  2. OPDIVO [Suspect]
     Active Substance: NIVOLUMAB
     Dosage: 240MG (1 VIAL)?1888284
     Route: 042

REACTIONS (3)
  - Chest pain [Unknown]
  - Dyspnoea [Unknown]
  - Flushing [Unknown]

NARRATIVE: CASE EVENT DATE: 20220314
